FAERS Safety Report 9543876 (Version 2)
Quarter: 2013Q3

REPORT INFORMATION
  Report Type: Report from Study
  Country: FR (occurrence: FR)
  Receive Date: 20130923
  Receipt Date: 20130927
  Transmission Date: 20140515
  Serious: Yes (Hospitalization)
  Sender: FDA-Public Use
  Company Number: FR-GLAXOSMITHKLINE-B0924218A

PATIENT
  Age: 57 Year
  Sex: Female
  Weight: 57 kg

DRUGS (1)
  1. PAZOPANIB [Suspect]
     Indication: DESMOID TUMOUR
     Dosage: 800MG CYCLIC
     Route: 048
     Dates: start: 20130612

REACTIONS (1)
  - Retinal detachment [Recovered/Resolved]
